FAERS Safety Report 9688485 (Version 1)
Quarter: 2013Q4

REPORT INFORMATION
  Report Type: Spontaneous
  Country: US (occurrence: None)
  Receive Date: 20131112
  Receipt Date: 20131112
  Transmission Date: 20140711
  Serious: Yes (Hospitalization)
  Sender: FDA-Public Use
  Company Number: SP07203

PATIENT
  Age: 49 Year
  Sex: Female

DRUGS (1)
  1. XIFAXAN (550 MILLIGRAM, TABLET) [Suspect]
     Indication: HEPATIC CIRRHOSIS
     Dosage: (2 IN 1 D), ORAL
     Route: 048
     Dates: start: 2012

REACTIONS (1)
  - Convulsion [None]
